FAERS Safety Report 11554404 (Version 4)
Quarter: 2015Q4

REPORT INFORMATION
  Report Type: Spontaneous
  Country: US (occurrence: None)
  Receive Date: 20150925
  Receipt Date: 20151116
  Transmission Date: 20160304
  Serious: Yes (Other)
  Sender: FDA-Public Use
  Company Number: US-MDT-ADR-2015-01851

PATIENT
  Age: 51 Year
  Sex: Female

DRUGS (2)
  1. GABLOFEN [Suspect]
     Active Substance: BACLOFEN
     Dosage: 313.6MCG/DAY
  2. BACLOFEN ORAL [Suspect]
     Active Substance: BACLOFEN

REACTIONS (1)
  - No adverse event [None]
